FAERS Safety Report 22115264 (Version 1)
Quarter: 2023Q1

REPORT INFORMATION
  Report Type: Spontaneous
  Country: US (occurrence: None)
  Receive Date: 20230317
  Receipt Date: 20230317
  Transmission Date: 20230418
  Serious: Yes (Hospitalization)
  Sender: FDA-Public Use
  Company Number: None

PATIENT
  Age: 62 Year
  Sex: Female
  Weight: 80.74 kg

DRUGS (16)
  1. VERZENIO [Suspect]
     Active Substance: ABEMACICLIB
     Indication: Breast cancer female
     Dosage: FREQUENCY : TWICE A DAY;?
     Route: 048
     Dates: start: 20230227
  2. ALBUTEROL [Concomitant]
     Active Substance: ALBUTEROL
  3. ANASTRAZOLE [Concomitant]
  4. ATORVASTATIN [Concomitant]
     Active Substance: ATORVASTATIN
  5. CALCIUM\VITAMIN D [Concomitant]
     Active Substance: CALCIUM\VITAMIN D
  6. CARVEDILOL [Concomitant]
     Active Substance: CARVEDILOL
  7. VITAMIN B12 [Concomitant]
     Active Substance: CYANOCOBALAMIN
  8. ELIQUIS [Concomitant]
  9. ENTRESTO [Concomitant]
  10. FUROSEMIDE [Concomitant]
  11. IBUPROFEN [Concomitant]
  12. LORAZEPAM [Concomitant]
  13. ONDANSETRON [Concomitant]
  14. OZEMPIC [Concomitant]
  15. SPIRONOLACTONE [Concomitant]
  16. TRELEGY ELLIPTA [Concomitant]

REACTIONS (4)
  - Chest pain [None]
  - Vomiting [None]
  - Dizziness [None]
  - Diarrhoea [None]
